FAERS Safety Report 4282473-0 (Version None)
Quarter: 2004Q1

REPORT INFORMATION
  Report Type: 
  Country: None (occurrence: None)
  Receive Date: 20040116
  Receipt Date: 20021220
  Transmission Date: 20041129
  Serious: Yes (Hospitalization)
  Sender: FDA-Public Use
  Company Number: 02P-163-0206881-00

PATIENT
  Sex: Male

DRUGS (1)
  1. MERIDIA [Suspect]
     Indication: WEIGHT CONTROL
     Dosage: 15 MG, 1 IN 1 D, PER ORAL
     Route: 048
     Dates: start: 19990323, end: 19991217

REACTIONS (3)
  - EJECTION FRACTION DECREASED [None]
  - HYPERTENSION [None]
  - MYOCARDIAL INFARCTION [None]
